APPROVED DRUG PRODUCT: HIBICLENS
Active Ingredient: CHLORHEXIDINE GLUCONATE
Strength: 4% **Federal Register determination that product was not discontinued or withdrawn for safety or effectiveness reasons**
Dosage Form/Route: SPONGE;TOPICAL
Application: N018423 | Product #001
Applicant: MOLNLYCKE HEALTH CARE
Approved: Approved Prior to Jan 1, 1982 | RLD: Yes | RS: No | Type: DISCN